FAERS Safety Report 5814844-2 (Version None)
Quarter: 2008Q3

REPORT INFORMATION
  Report Type: 
  Country: None (occurrence: None)
  Receive Date: 20080718
  Receipt Date: 20080714
  Transmission Date: 20090109
  Serious: Yes (Death)
  Sender: FDA-Public Use
  Company Number: CZ-JNJFOC-20080704135

PATIENT
  Age: 76 Year
  Sex: Male

DRUGS (5)
  1. REOPRO [Suspect]
     Indication: CARDIOGENIC SHOCK
     Route: 042
  2. REOPRO [Suspect]
     Indication: MYOCARDIAL INFARCTION
     Route: 042
  3. PLAVIX [Concomitant]
  4. HEPARIN [Concomitant]
  5. ACETYLSALICYLIC ACID SRT [Concomitant]

REACTIONS (1)
  - PERICARDIAL HAEMORRHAGE [None]
